FAERS Safety Report 8607615-5 (Version None)
Quarter: 2012Q3

REPORT INFORMATION
  Report Type: 
  Country: None (occurrence: None)
  Receive Date: 20120821
  Receipt Date: 20120813
  Transmission Date: 20120928
  Serious: Yes (Hospitalization, Other)
  Sender: FDA-Public Use
  Company Number: US-US-EMD SERONO, INC.-7093436

PATIENT
  Sex: Female

DRUGS (9)
  1. REBIF [Suspect]
     Route: 058
     Dates: start: 20111001
  2. SOLU-MEDROL [Concomitant]
     Indication: OPTIC NEURITIS
     Dosage: THREE DAYS
     Dates: start: 20090301
  3. REBIF [Suspect]
     Indication: MULTIPLE SCLEROSIS
     Route: 058
     Dates: start: 20100705, end: 20110720
  4. MULTI-VITAMINS [Concomitant]
  5. BENTYL [Concomitant]
  6. CALCIUM [Concomitant]
  7. LOESTREL [Concomitant]
  8. CITALOPRAM HYDROBROMIDE [Concomitant]
  9. VITAMIN D [Concomitant]

REACTIONS (13)
  - INSOMNIA [None]
  - PNEUMONIA [None]
  - ROSACEA [None]
  - INCISION SITE INFECTION [None]
  - EYE PAIN [None]
  - DIARRHOEA [None]
  - BRONCHITIS [None]
  - VISION BLURRED [None]
  - HYPOAESTHESIA [None]
  - CARCINOID TUMOUR PULMONARY [None]
  - CENTRAL NERVOUS SYSTEM LESION [None]
  - FLUSHING [None]
  - ASPARTATE AMINOTRANSFERASE INCREASED [None]
